FAERS Safety Report 24998102 (Version 1)
Quarter: 2025Q1

REPORT INFORMATION
  Report Type: Spontaneous
  Country: US (occurrence: US)
  Receive Date: 20250222
  Receipt Date: 20250222
  Transmission Date: 20250409
  Serious: No
  Sender: SANOFI AVENTIS
  Company Number: US-SA-2025SA043419

PATIENT
  Sex: Female

DRUGS (14)
  1. DUPIXENT [Suspect]
     Active Substance: DUPILUMAB
     Indication: Dermatitis atopic
     Dosage: 300 MG QOW
     Route: 058
  2. DUTASTERIDE [Concomitant]
     Active Substance: DUTASTERIDE
  3. ESTRADIOL [Concomitant]
     Active Substance: ESTRADIOL
  4. PRAVASTATIN [Concomitant]
     Active Substance: PRAVASTATIN
  5. SENNA [Concomitant]
     Active Substance: SENNOSIDES
  6. TROSPIUM [Concomitant]
     Active Substance: TROSPIUM
  7. TUMS [Concomitant]
     Active Substance: CALCIUM CARBONATE
  8. VITAMIN D NOS [Concomitant]
     Active Substance: CHOLECALCIFEROL\ERGOCALCIFEROL
  9. ALBUTEROL SULFATE [Concomitant]
     Active Substance: ALBUTEROL SULFATE
  10. FISH OIL [Concomitant]
     Active Substance: FISH OIL
  11. MELATONIN [Concomitant]
     Active Substance: MELATONIN
  12. PROBIOTICS NOS [Concomitant]
     Active Substance: PROBIOTICS NOS
  13. TRAZODONE HCL [Concomitant]
     Active Substance: TRAZODONE HYDROCHLORIDE
  14. XYZAL ALLERGY 24HR [Concomitant]
     Active Substance: LEVOCETIRIZINE DIHYDROCHLORIDE

REACTIONS (7)
  - Mouth ulceration [Not Recovered/Not Resolved]
  - Oral pain [Not Recovered/Not Resolved]
  - Oral discomfort [Recovered/Resolved]
  - Stomatitis [Not Recovered/Not Resolved]
  - Hand fracture [Not Recovered/Not Resolved]
  - Skin hyperpigmentation [Unknown]
  - Pruritus [Recovering/Resolving]
